FAERS Safety Report 9036330 (Version 1)
Quarter: 2013Q1

REPORT INFORMATION
  Report Type: Spontaneous
  Country: JP (occurrence: None)
  Receive Date: 20130114
  Receipt Date: 20130114
  Transmission Date: 20140127
  Serious: Yes (Hospitalization, Other)
  Sender: FDA-Public Use
  Company Number: 2013P1000024

PATIENT
  Age: 38 Year
  Sex: Female

DRUGS (4)
  1. CEFTRIAXONE [Suspect]
  2. CEFDITOREN PIVOXIL [Suspect]
  3. OXACEPHEM [Suspect]
     Dosage: X2
     Route: 042
  4. CEFTERAM PIVOXIL [Suspect]
     Route: 048

REACTIONS (8)
  - Erythema [None]
  - Hyperhidrosis [None]
  - Pyrexia [None]
  - White blood cell count increased [None]
  - Haemoglobin decreased [None]
  - Episiotomy [None]
  - Forceps delivery [None]
  - Acute generalised exanthematous pustulosis [None]
